FAERS Safety Report 7965742-X (Version None)
Quarter: 2011Q4

REPORT INFORMATION
  Report Type: 
  Country: None (occurrence: None)
  Receive Date: 20111208
  Receipt Date: 20111205
  Transmission Date: 20120403
  Serious: Yes (Death, Hospitalization)
  Sender: FDA-Public Use
  Company Number: US-VERTEX PHARMACEUTICALS INC.-AE-2011-004496

PATIENT
  Sex: Male

DRUGS (4)
  1. INCIVEK [Suspect]
     Indication: HEPATITIS C
     Route: 048
     Dates: start: 20110101
  2. PEG-INTRON [Concomitant]
     Indication: HEPATITIS C
  3. TACROLIMUS [Concomitant]
     Indication: IMMUNOSUPPRESSION
  4. RIBAVIRIN [Concomitant]
     Indication: HEPATITIS C

REACTIONS (8)
  - RENAL FAILURE [None]
  - NAUSEA [None]
  - VOMITING [None]
  - OFF LABEL USE [None]
  - RESPIRATORY FAILURE [None]
  - SHOCK [None]
  - LACTIC ACIDOSIS [None]
  - DIARRHOEA [None]
